FAERS Safety Report 4855081-8 (Version None)
Quarter: 2005Q4

REPORT INFORMATION
  Report Type: 
  Country: None (occurrence: None)
  Receive Date: 20051125
  Receipt Date: 20050316
  Transmission Date: 20060501
  Serious: Yes (Disabling)
  Sender: FDA-Public Use
  Company Number: US-JNJFOC-20041200896

PATIENT
  Age: 46 Year
  Sex: Male

DRUGS (4)
  1. LEVAQUIN [Suspect]
     Indication: BRONCHITIS
     Dosage: 500 MG, 1 IN 1 DAY
     Dates: start: 20041030, end: 20041102
  2. FLONASE [Concomitant]
  3. CLARITIN [Concomitant]
  4. SINGULAIR [Concomitant]

REACTIONS (10)
  - ARTHRALGIA [None]
  - ASTHENIA [None]
  - MUSCLE SPASMS [None]
  - MYALGIA [None]
  - NERVOUS SYSTEM DISORDER [None]
  - NEUROPATHY PERIPHERAL [None]
  - PARAESTHESIA [None]
  - TENDONITIS [None]
  - TINNITUS [None]
  - VASCULITIS [None]
